FAERS Safety Report 12678431 (Version 4)
Quarter: 2016Q3

REPORT INFORMATION
  Report Type: Report from Study
  Country: CA (occurrence: CA)
  Receive Date: 20160823
  Receipt Date: 20160916
  Transmission Date: 20161109
  Serious: Yes (Other)
  Sender: FDA-Public Use
  Company Number: CA-ABBVIE-16K-028-1701938-00

PATIENT
  Sex: Male

DRUGS (1)
  1. HUMIRA [Suspect]
     Active Substance: ADALIMUMAB
     Indication: CROHN^S DISEASE
     Route: 058
     Dates: start: 20140522

REACTIONS (3)
  - Procedural intestinal perforation [Recovered/Resolved]
  - Abdominal pain [Not Recovered/Not Resolved]
  - Post procedural fistula [Not Recovered/Not Resolved]

NARRATIVE: CASE EVENT DATE: 2016
